FAERS Safety Report 9253920 (Version 5)
Quarter: 2014Q1

REPORT INFORMATION
  Report Type: Spontaneous
  Country: US (occurrence: US)
  Receive Date: 20130425
  Receipt Date: 20140311
  Transmission Date: 20141002
  Serious: Yes (Hospitalization)
  Sender: FDA-Public Use
  Company Number: US-ASTRAZENECA-2013SE27297

PATIENT
  Age: 51 Year
  Sex: Female
  Weight: 90.7 kg

DRUGS (69)
  1. NEXIUM [Suspect]
     Indication: GASTROOESOPHAGEAL REFLUX DISEASE
     Route: 048
     Dates: start: 2000, end: 20101115
  2. NEXIUM [Suspect]
     Indication: DYSPEPSIA
     Route: 048
     Dates: start: 2000, end: 20101115
  3. NEXIUM [Suspect]
     Indication: ULCER
     Route: 048
     Dates: start: 2000, end: 20101115
  4. NEXIUM [Suspect]
     Indication: GASTROOESOPHAGEAL REFLUX DISEASE
     Route: 048
     Dates: start: 20091103
  5. NEXIUM [Suspect]
     Indication: DYSPEPSIA
     Route: 048
     Dates: start: 20091103
  6. NEXIUM [Suspect]
     Indication: ULCER
     Route: 048
     Dates: start: 20091103
  7. NEXIUM [Suspect]
     Indication: GASTROOESOPHAGEAL REFLUX DISEASE
     Route: 048
     Dates: start: 20091105
  8. NEXIUM [Suspect]
     Indication: DYSPEPSIA
     Route: 048
     Dates: start: 20091105
  9. NEXIUM [Suspect]
     Indication: ULCER
     Route: 048
     Dates: start: 20091105
  10. NEXIUM [Suspect]
     Indication: GASTROOESOPHAGEAL REFLUX DISEASE
     Route: 048
     Dates: start: 200910, end: 201012
  11. NEXIUM [Suspect]
     Indication: DYSPEPSIA
     Route: 048
     Dates: start: 200910, end: 201012
  12. NEXIUM [Suspect]
     Indication: ULCER
     Route: 048
     Dates: start: 200910, end: 201012
  13. PRILOSEC [Suspect]
     Indication: GASTROOESOPHAGEAL REFLUX DISEASE
     Route: 048
     Dates: start: 1989
  14. PRILOSEC [Suspect]
     Indication: GASTROOESOPHAGEAL REFLUX DISEASE
     Route: 048
     Dates: start: 20070926
  15. PRILOSEC [Suspect]
     Indication: GASTROOESOPHAGEAL REFLUX DISEASE
     Route: 048
     Dates: start: 200709, end: 200909
  16. PRILOSEC [Suspect]
     Indication: GASTROOESOPHAGEAL REFLUX DISEASE
     Route: 048
     Dates: start: 20080718
  17. PROTONIX [Concomitant]
     Dates: start: 200602, end: 200708
  18. PREVACID [Concomitant]
     Indication: ULCER
     Dates: start: 20040305
  19. PREVACID [Concomitant]
     Indication: NAUSEA
     Dates: start: 20040305
  20. PREVACID [Concomitant]
     Indication: DYSPEPSIA
     Dates: start: 20040305
  21. PREVACID [Concomitant]
     Indication: ULCER
     Dates: start: 200403, end: 200603
  22. PREVACID [Concomitant]
     Indication: NAUSEA
     Dates: start: 200403, end: 200603
  23. PREVACID [Concomitant]
     Indication: DYSPEPSIA
     Dates: start: 200403, end: 200603
  24. ZANTAC [Concomitant]
  25. TAGAMET [Concomitant]
  26. PEPCID [Concomitant]
  27. TUMS [Concomitant]
  28. ALKA-SELTZER [Concomitant]
  29. MILK OF MAGNESIA [Concomitant]
  30. GAVISCON [Concomitant]
  31. PEPTO-BISMOL [Concomitant]
  32. MYLANTA [Concomitant]
  33. METFORMIN HCL [Concomitant]
     Indication: BLOOD GLUCOSE ABNORMAL
     Route: 048
  34. METFORMIN HCL [Concomitant]
     Indication: DIABETES MELLITUS
     Route: 048
  35. ESTRADIOL [Concomitant]
     Route: 048
  36. ZOCOR [Concomitant]
     Indication: BLOOD CHOLESTEROL
     Route: 048
     Dates: start: 20050304
  37. SUCRALFATE [Concomitant]
     Indication: NAUSEA
  38. ASACOL EC [Concomitant]
     Indication: ABDOMINAL PAIN UPPER
  39. CALCIUM [Concomitant]
     Indication: OSTEOPOROSIS
  40. CALCIUM [Concomitant]
     Indication: CALCIUM DEFICIENCY
  41. VITAMIN D [Concomitant]
     Indication: CALCIUM DEFICIENCY
  42. VITAMIN D [Concomitant]
     Indication: OSTEOPOROSIS
  43. FISH OIL [Concomitant]
  44. PROZAC [Concomitant]
     Dates: start: 20041119
  45. CELEXA [Concomitant]
  46. SKELAXIN [Concomitant]
  47. PREMARIN [Concomitant]
     Dates: start: 20031125
  48. PRAVACHOL [Concomitant]
     Dates: start: 20031120
  49. TRAZODONE [Concomitant]
     Dates: start: 20040318
  50. LIPITOR [Concomitant]
  51. VALTREX [Concomitant]
  52. CYCLOBENZAPRINE [Concomitant]
     Dates: start: 20040528
  53. TIZANIDINE HCL [Concomitant]
     Dates: start: 20040722
  54. METHYLPREDNISOLONE [Concomitant]
     Dates: start: 20050609
  55. LEXAPRO [Concomitant]
     Dates: start: 20050325
  56. CARISOPRODOL [Concomitant]
     Dates: start: 20050826
  57. GLIPIZIDE [Concomitant]
     Dates: start: 20050817
  58. CYMBALTA [Concomitant]
     Dates: start: 20050817
  59. TEMAZEPAM [Concomitant]
     Dates: start: 20060725
  60. ZETIA [Concomitant]
     Dates: start: 20070914
  61. SERTRALINE [Concomitant]
     Dates: start: 20071016
  62. ZOLPIDEM TARTRATE [Concomitant]
     Dates: start: 20080125
  63. VENLAFAXINE HCL [Concomitant]
  64. GABAPENTIN [Concomitant]
  65. ALENDRONATE SOD [Concomitant]
     Dates: start: 20091217
  66. DEXAMETHASONE [Concomitant]
     Dates: start: 20101116
  67. GLYBURIDE [Concomitant]
     Dates: start: 20110615
  68. BUSPIRONE HCL [Concomitant]
     Dates: start: 20111024
  69. AMITRIPTYLINE [Concomitant]
     Dates: start: 20111102

REACTIONS (22)
  - Neck pain [Unknown]
  - Back pain [Unknown]
  - Infection [Unknown]
  - Pain [Unknown]
  - Sinus congestion [Unknown]
  - Abdominal pain upper [Unknown]
  - Bone density decreased [Unknown]
  - Osteoporosis [Unknown]
  - Bone loss [Unknown]
  - Intervertebral disc degeneration [Unknown]
  - Bone pain [Unknown]
  - Calcium deficiency [Unknown]
  - Crohn^s disease [Unknown]
  - Pain in extremity [Unknown]
  - Scoliosis [Unknown]
  - Vitamin D deficiency [Unknown]
  - Arthritis [Unknown]
  - Multiple fractures [Unknown]
  - Anxiety [Unknown]
  - Depression [Unknown]
  - Sleep disorder [Unknown]
  - Body height decreased [Unknown]
